FAERS Safety Report 9647803 (Version 1)
Quarter: 2013Q4

REPORT INFORMATION
  Report Type: Spontaneous
  Country: US (occurrence: US)
  Receive Date: 20131028
  Receipt Date: 20131028
  Transmission Date: 20140711
  Serious: No
  Sender: FDA-Public Use
  Company Number: US-PFIZER INC-2013302596

PATIENT
  Age: 9 Year
  Sex: Female

DRUGS (1)
  1. QUILLIVANT XR [Suspect]
     Indication: DEPRESSION
     Dosage: UNK, 1X/DAY
     Route: 048
     Dates: start: 201309

REACTIONS (7)
  - Off label use [Unknown]
  - Drug dose omission [Unknown]
  - Depressed mood [Unknown]
  - Irritability [Unknown]
  - Abdominal pain upper [Unknown]
  - Crying [Not Recovered/Not Resolved]
  - Emotional disorder [Not Recovered/Not Resolved]
